FAERS Safety Report 9997632 (Version 1)
Quarter: 2014Q1

REPORT INFORMATION
  Report Type: Spontaneous
  Country: US (occurrence: US)
  Receive Date: 20140311
  Receipt Date: 20140311
  Transmission Date: 20141002
  Serious: Yes (Hospitalization)
  Sender: FDA-Public Use
  Company Number: US-TEVA-465702USA

PATIENT
  Sex: Female
  Weight: 165 kg

DRUGS (9)
  1. ACTIQ [Suspect]
     Indication: SYRINGOMYELIA
     Route: 048
     Dates: start: 201208, end: 201302
  2. ACTIQ [Suspect]
     Indication: POST HERPETIC NEURALGIA
  3. KLONOPIN [Concomitant]
     Indication: NEURALGIA
     Dosage: 2 MILLIGRAM DAILY;
     Route: 048
  4. KLONOPIN [Concomitant]
     Indication: TREMOR
  5. CYMBALTA [Concomitant]
     Indication: NEURALGIA
  6. CYMBALTA [Concomitant]
     Indication: DEPRESSION
  7. LIDOCAINE 5% [Concomitant]
     Indication: PAIN
  8. MORPHINE ER [Concomitant]
     Indication: PAIN
     Dosage: 120 MILLIGRAM DAILY;
     Route: 048
  9. ROXICODONE IR [Concomitant]
     Indication: BREAKTHROUGH PAIN
     Route: 048

REACTIONS (5)
  - Investigation [Unknown]
  - Vomiting [Unknown]
  - Nausea [Unknown]
  - Headache [Unknown]
  - Off label use [Unknown]
